FAERS Safety Report 18868866 (Version 3)
Quarter: 2022Q1

REPORT INFORMATION
  Report Type: Report from Study
  Country: CA (occurrence: CA)
  Receive Date: 20210209
  Receipt Date: 20220302
  Transmission Date: 20220423
  Serious: Yes (Other)
  Sender: FDA-Public Use
  Company Number: CA-JNJFOC-20210205813

PATIENT
  Age: 66 Year
  Sex: Male
  Weight: 73.548 kg

DRUGS (18)
  1. PLACEBO [Suspect]
     Active Substance: UNSPECIFIED INGREDIENT
     Indication: Prostate cancer
     Route: 048
     Dates: start: 20200811, end: 20210124
  2. ELIGARD [Suspect]
     Active Substance: LEUPROLIDE ACETATE
     Indication: Prostate cancer
     Dosage: MOST RECENT DOSE ON 18-MAY-2021
     Route: 058
     Dates: start: 20200811
  3. L-LYSINE [LYSINE] [Concomitant]
     Indication: Supplementation therapy
     Route: 048
     Dates: start: 20200301
  4. DEGLYCYRRHIZED LICORICE [Concomitant]
     Indication: Supplementation therapy
     Route: 048
     Dates: start: 20200301
  5. SELENOMETHIONINE [Concomitant]
     Active Substance: SELENOMETHIONINE
     Indication: Supplementation therapy
     Route: 048
     Dates: start: 20200301
  6. QUERCETIN [Concomitant]
     Active Substance: QUERCETIN
     Indication: Supplementation therapy
     Route: 048
     Dates: start: 20200301
  7. OLEA EUROPAEA LEAF [Concomitant]
     Active Substance: OLEA EUROPAEA LEAF
     Indication: Supplementation therapy
     Route: 048
     Dates: start: 20200301
  8. TURKEY TAIL [Concomitant]
     Indication: Supplementation therapy
     Route: 048
     Dates: start: 20200301
  9. COD LIVER OIL [Concomitant]
     Active Substance: COD LIVER OIL
     Indication: Supplementation therapy
     Route: 048
     Dates: start: 20200301
  10. DIETARY SUPPLEMENT\HERBALS [Concomitant]
     Active Substance: DIETARY SUPPLEMENT\HERBALS
     Indication: Supplementation therapy
     Route: 048
     Dates: start: 20200301
  11. CHAGA [Concomitant]
     Indication: Supplementation therapy
     Route: 048
     Dates: start: 20200301
  12. TART CHERRY [Concomitant]
     Indication: Supplementation therapy
     Route: 048
     Dates: start: 20200301
  13. ROYAL JELLY [Concomitant]
     Active Substance: ROYAL JELLY
     Indication: Supplementation therapy
     Route: 048
     Dates: start: 20200301
  14. COLLAGEN [Concomitant]
     Active Substance: COLLAGEN
     Indication: Supplementation therapy
     Dosage: 0.5 TEASPOON
     Route: 048
     Dates: start: 20200301
  15. ERGOCALCIFEROL [Concomitant]
     Active Substance: ERGOCALCIFEROL
     Indication: Supplementation therapy
     Route: 048
     Dates: start: 20200301
  16. ACETAMINOPHEN [Concomitant]
     Active Substance: ACETAMINOPHEN
     Indication: Pain management
     Route: 048
     Dates: start: 20210125
  17. HYDROMORPHONE [Concomitant]
     Active Substance: HYDROMORPHONE
     Indication: Pain management
     Route: 042
     Dates: start: 20210125
  18. ROPIVACAINE [Concomitant]
     Active Substance: ROPIVACAINE
     Indication: Prostate cancer
     Route: 031
     Dates: start: 20210125, end: 20210125

REACTIONS (1)
  - Pulmonary embolism [Recovered/Resolved]

NARRATIVE: CASE EVENT DATE: 20210126
